FAERS Safety Report 7276458-X (Version None)
Quarter: 2011Q1

REPORT INFORMATION
  Report Type: 
  Country: None (occurrence: None)
  Receive Date: 20110204
  Receipt Date: 20110203
  Transmission Date: 20110831
  Serious: Yes (Other)
  Sender: FDA-Public Use
  Company Number: US-AMGEN-USASP2011006626

PATIENT
  Age: 45 Year
  Sex: Female
  Weight: 68 kg

DRUGS (7)
  1. ADDERALL 10 [Concomitant]
     Indication: PRODUCT USED FOR UNKNOWN INDICATION
  2. WELLBUTRIN [Concomitant]
     Indication: PRODUCT USED FOR UNKNOWN INDICATION
  3. NPLATE [Suspect]
     Dosage: UNK
     Dates: start: 20110202
  4. DOXYCYCLINE [Concomitant]
     Indication: PERIODONTAL DISEASE
  5. LEXAPRO [Concomitant]
     Indication: PRODUCT USED FOR UNKNOWN INDICATION
  6. NPLATE [Suspect]
     Indication: IDIOPATHIC THROMBOCYTOPENIC PURPURA
     Dates: start: 20110124
  7. STEROIDS [Concomitant]
     Indication: IDIOPATHIC THROMBOCYTOPENIC PURPURA
     Dosage: UNK

REACTIONS (9)
  - ANXIETY [None]
  - INSOMNIA [None]
  - EMOTIONAL DISORDER [None]
  - CRYING [None]
  - PAIN [None]
  - WEIGHT INCREASED [None]
  - TREMOR [None]
  - MOOD SWINGS [None]
  - HYPERAESTHESIA [None]
